FAERS Safety Report 7437267-1 (Version None)
Quarter: 2011Q2

REPORT INFORMATION
  Report Type: 
  Country: None (occurrence: None)
  Receive Date: 20110426
  Receipt Date: 20110418
  Transmission Date: 20111010
  Serious: Yes (Death, Hospitalization)
  Sender: FDA-Public Use
  Company Number: FR-KINGPHARMUSA00001-K201100474

PATIENT
  Age: 56 Year
  Sex: Female

DRUGS (3)
  1. FELODIPINE [Suspect]
     Indication: HYPERTENSION
     Dosage: 5 MG, QD
     Route: 048
     Dates: start: 20101101, end: 20110404
  2. LANTUS [Concomitant]
  3. ALTACE [Suspect]
     Indication: HYPERTENSION
     Dosage: 5 MG, QD
     Route: 048
     Dates: start: 20101101, end: 20110404

REACTIONS (1)
  - CARDIO-RESPIRATORY DISTRESS [None]
